FAERS Safety Report 11118950 (Version 1)
Quarter: 2015Q2

REPORT INFORMATION
  Report Type: Report from Study
  Country: US (occurrence: US)
  Receive Date: 20150518
  Receipt Date: 20150518
  Transmission Date: 20150821
  Serious: Yes (Hospitalization)
  Sender: FDA-Public Use
  Company Number: US-009507513-1505USA005958

PATIENT
  Age: 80 Year
  Sex: Male
  Weight: 86 kg

DRUGS (7)
  1. HEXADROL [Suspect]
     Active Substance: DEXAMETHASONE
     Dosage: 4 MG QD CYCLE 1 DAY 15
     Route: 048
     Dates: start: 20141231
  2. HEXADROL [Suspect]
     Active Substance: DEXAMETHASONE
     Dosage: HALF 2 MG TABLET
     Route: 048
     Dates: start: 20150317
  3. HEXADROL [Suspect]
     Active Substance: DEXAMETHASONE
     Dosage: TAPER DOSE BY 2MG EVERY 3 DAYS STARTING 3 DAYS AFTER CYBERKNIFE TREATMENT (TAPER DOSE TO 4 MG DAILY
     Route: 048
     Dates: start: 20150309, end: 20150317
  4. DACOMITINIB [Suspect]
     Active Substance: DACOMITINIB
     Indication: GLIOBLASTOMA
     Dosage: 30 MG, QD; CYCLIC
     Route: 048
     Dates: start: 20141217, end: 20150211
  5. LEVETIRACETAM. [Concomitant]
     Active Substance: LEVETIRACETAM
     Dosage: 500 MG, UNK FREQUENCY
     Route: 048
  6. HYDROCHLOROTHIAZIDE. [Concomitant]
     Active Substance: HYDROCHLOROTHIAZIDE
     Dosage: 1 TABLET QD; DOSE ADJUSTED ON AUNSPECIFIED DATE
  7. CARDIZEM [Concomitant]
     Active Substance: DILTIAZEM HYDROCHLORIDE
     Dosage: 240 MG, QD
     Route: 048

REACTIONS (8)
  - Urinary tract infection [Unknown]
  - Urinary incontinence [Unknown]
  - Cystitis [Unknown]
  - Muscular weakness [Unknown]
  - Fall [Unknown]
  - Vomiting [Unknown]
  - Hyperglycaemia [Recovered/Resolved]
  - Helicobacter infection [Unknown]

NARRATIVE: CASE EVENT DATE: 20150311
